FAERS Safety Report 21406782 (Version 1)
Quarter: 2022Q4

REPORT INFORMATION
  Report Type: Spontaneous
  Country: US (occurrence: US)
  Receive Date: 20221004
  Receipt Date: 20221004
  Transmission Date: 20230113
  Serious: Yes (Other)
  Sender: FDA-Public Use
  Company Number: US-SA-SAC20211122000047

PATIENT
  Age: 72 Year
  Sex: Female

DRUGS (2)
  1. ZANTAC [Suspect]
     Active Substance: RANITIDINE HYDROCHLORIDE
     Indication: Gastrooesophageal reflux disease
     Dosage: 75 MG (FREQUENCY: OTHER)
     Dates: start: 200001
  2. ZANTAC [Suspect]
     Active Substance: RANITIDINE HYDROCHLORIDE
     Indication: Gastrinoma
     Dosage: 150 MG (FREQUENCY: OTHER)
     Dates: end: 201707

REACTIONS (1)
  - Gastric cancer [Unknown]

NARRATIVE: CASE EVENT DATE: 20170721
